FAERS Safety Report 19210566 (Version 1)
Quarter: 2021Q2

REPORT INFORMATION
  Report Type: Spontaneous
  Country: US (occurrence: US)
  Receive Date: 20210503
  Receipt Date: 20210503
  Transmission Date: 20210717
  Serious: Yes (Hospitalization)
  Sender: FDA-Public Use
  Company Number: None

PATIENT
  Age: 63 Year
  Sex: Male
  Weight: 73.48 kg

DRUGS (13)
  1. BICALUTAMIDE. [Suspect]
     Active Substance: BICALUTAMIDE
     Indication: PROSTATE CANCER
     Route: 048
     Dates: start: 20210108, end: 20210503
  2. METHOCARBAMOL. [Concomitant]
     Active Substance: METHOCARBAMOL
  3. LIDOCAINE. [Concomitant]
     Active Substance: LIDOCAINE
  4. MORPHINE SULFATE ER [Concomitant]
     Active Substance: MORPHINE SULFATE
  5. ERLEADA [Suspect]
     Active Substance: APALUTAMIDE
     Indication: PROSTATE CANCER
     Route: 048
     Dates: start: 20210108, end: 20210503
  6. FOLIC ACID. [Concomitant]
     Active Substance: FOLIC ACID
  7. PANTOPRAZOLE SODIUM. [Concomitant]
     Active Substance: PANTOPRAZOLE SODIUM
  8. OSCAL 500/200 D?3 [Concomitant]
  9. ARIXTRA [Concomitant]
     Active Substance: FONDAPARINUX SODIUM
  10. NYSTATIN. [Concomitant]
     Active Substance: NYSTATIN
  11. TAMSULOSIN HCL [Concomitant]
     Active Substance: TAMSULOSIN HYDROCHLORIDE
  12. FUROSEMIDE. [Concomitant]
     Active Substance: FUROSEMIDE
  13. THERAGRAN?M ADVANCED [Concomitant]

REACTIONS (2)
  - Head and neck cancer [None]
  - Disease progression [None]

NARRATIVE: CASE EVENT DATE: 20210309
